FAERS Safety Report 5188285-8 (Version None)
Quarter: 2006Q4

REPORT INFORMATION
  Report Type: 
  Country: None (occurrence: None)
  Receive Date: 20061221
  Receipt Date: 20061214
  Transmission Date: 20070319
  Serious: Yes (Other)
  Sender: FDA-Public Use
  Company Number: FR-GLAXOSMITHKLINE-B0451267A

PATIENT
  Age: 70 Year
  Sex: Male

DRUGS (4)
  1. WELLVONE [Suspect]
     Indication: PNEUMOCYSTIS JIROVECI INFECTION
     Dosage: 750MG TWICE PER DAY
     Route: 048
     Dates: start: 20061001
  2. METHOTREXATE [Concomitant]
     Indication: RHEUMATOID ARTHRITIS
     Route: 065
     Dates: start: 20051001, end: 20061001
  3. CORTICOID [Concomitant]
     Indication: RHEUMATOID ARTHRITIS
     Route: 065
     Dates: start: 20051001, end: 20061001
  4. ANTIHYPERTENSIVE [Concomitant]
     Indication: HYPERTENSION
     Route: 065

REACTIONS (4)
  - ALANINE AMINOTRANSFERASE INCREASED [None]
  - ARTHRITIS [None]
  - ASPARTATE AMINOTRANSFERASE INCREASED [None]
  - GAMMA-GLUTAMYLTRANSFERASE INCREASED [None]
